FAERS Safety Report 15626972 (Version 2)
Quarter: 2018Q4

REPORT INFORMATION
  Report Type: Spontaneous
  Country: IN (occurrence: IN)
  Receive Date: 20181116
  Receipt Date: 20181204
  Transmission Date: 20190205
  Serious: Yes (Death, Hospitalization)
  Sender: FDA-Public Use
  Company Number: IN-JNJFOC-20181120450

PATIENT
  Age: 53 Year
  Sex: Female

DRUGS (1)
  1. DARZALEX [Suspect]
     Active Substance: DARATUMUMAB
     Indication: PLASMA CELL MYELOMA
     Route: 042
     Dates: start: 20181109, end: 20181109

REACTIONS (4)
  - Pneumonia [Unknown]
  - Sepsis [Unknown]
  - Myocardial infarction [Fatal]
  - Septic shock [Unknown]
